FAERS Safety Report 5858887-1 (Version None)
Quarter: 2008Q3

REPORT INFORMATION
  Report Type: 
  Country: None (occurrence: None)
  Receive Date: 20080825
  Receipt Date: 20080807
  Transmission Date: 20090109
  Serious: Yes (Death)
  Sender: FDA-Public Use
  Company Number: 2008AL007317

PATIENT
  Age: 77 Year
  Sex: Female

DRUGS (12)
  1. DIGOXIN [Suspect]
  2. HUMALOG [Concomitant]
  3. LANTUS [Concomitant]
  4. SPIROMOLACTONE [Concomitant]
  5. TORSEMIDE [Concomitant]
  6. PROBENCIDE [Concomitant]
  7. TORSEMIDE [Concomitant]
  8. PROBENECIDE [Concomitant]
  9. HYDROCODONE BITARTRATE [Concomitant]
  10. ALBUTEROL [Concomitant]
  11. MELATONIN [Concomitant]
  12. FLUOXETINE [Concomitant]

REACTIONS (6)
  - BLOOD GLUCOSE INCREASED [None]
  - CONFUSIONAL STATE [None]
  - DELIRIUM [None]
  - RENAL FAILURE [None]
  - SYNCOPE [None]
  - THERAPEUTIC AGENT TOXICITY [None]
